FAERS Safety Report 20836055 (Version 3)
Quarter: 2022Q3

REPORT INFORMATION
  Report Type: Spontaneous
  Country: ES (occurrence: ES)
  Receive Date: 20220516
  Receipt Date: 20220713
  Transmission Date: 20221027
  Serious: Yes (Death, Other)
  Sender: FDA-Public Use
  Company Number: ES-DECIPHERA PHARMACEUTICALS LLC-2022ES000409

PATIENT
  Sex: Male

DRUGS (1)
  1. QINLOCK [Suspect]
     Active Substance: RIPRETINIB
     Indication: Gastrointestinal stromal tumour
     Dosage: UNK
     Route: 048
     Dates: start: 20211103, end: 20220210

REACTIONS (2)
  - Intestinal perforation [Fatal]
  - Disease progression [Unknown]

NARRATIVE: CASE EVENT DATE: 20220212
